FAERS Safety Report 4535412-9 (Version None)
Quarter: 2004Q4

REPORT INFORMATION
  Report Type: 
  Country: None (occurrence: None)
  Receive Date: 20041214
  Receipt Date: 20041007
  Transmission Date: 20050328
  Serious: No
  Sender: FDA-Public Use
  Company Number: USA040979716

PATIENT
  Age: 62 Year
  Sex: Male
  Weight: 72 kg

DRUGS (7)
  1. CIALIS [Suspect]
     Indication: ERECTILE DYSFUNCTION
     Dosage: 20 MG
  2. DIOVAN [Concomitant]
  3. REMERON [Concomitant]
  4. PRAVACHOL [Concomitant]
  5. M.V.I. [Concomitant]
  6. BABY ASPIRIN (ACETYLSALICYLIC AICD) [Concomitant]
  7. FLOMAX [Concomitant]

REACTIONS (1)
  - MYALGIA [None]
